FAERS Safety Report 7936587-1 (Version None)
Quarter: 2011Q4

REPORT INFORMATION
  Report Type: 
  Country: None (occurrence: None)
  Receive Date: 20111123
  Receipt Date: 20110902
  Transmission Date: 20120403
  Serious: No
  Sender: FDA-Public Use
  Company Number: US-BAYER-2011-088121

PATIENT
  Sex: Female
  Weight: 72.562 kg

DRUGS (3)
  1. THYROID MEDICATION [Concomitant]
  2. ALEVE (CAPLET) [Suspect]
     Indication: ANALGESIC THERAPY
     Dosage: 2 DF, QD
     Dates: start: 20100101
  3. ANTIHYPERTENSIVES [Concomitant]

REACTIONS (1)
  - PAIN [None]
